FAERS Safety Report 5128153-0 (Version None)
Quarter: 2006Q4

REPORT INFORMATION
  Report Type: 
  Country: None (occurrence: None)
  Receive Date: 20061011
  Receipt Date: 20060925
  Transmission Date: 20070319
  Serious: Yes (Death)
  Sender: FDA-Public Use
  Company Number: 8019228

PATIENT
  Age: 12 Year
  Sex: Male
  Weight: 67 kg

DRUGS (3)
  1. KEPPRA [Suspect]
     Dosage: 500 MG 3/D PO
     Route: 048
     Dates: start: 20050215
  2. CLOPIXOL /00876701/ [Suspect]
     Dosage: 10 DF 3/D PO
     Route: 048
     Dates: start: 20050915, end: 20060704
  3. SABRIL [Suspect]
     Dosage: 1000 MG 2/D PO
     Route: 048
     Dates: start: 20051115

REACTIONS (2)
  - CONVULSION [None]
  - SUDDEN DEATH [None]
